FAERS Safety Report 9825971 (Version 2)
Quarter: 2014Q1

REPORT INFORMATION
  Report Type: Report from Study
  Country: US (occurrence: US)
  Receive Date: 20140117
  Receipt Date: 20140117
  Transmission Date: 20141002
  Serious: Yes (Other)
  Sender: FDA-Public Use
  Company Number: US-NOVOPROD-387722

PATIENT
  Age: 67 Year
  Sex: Female

DRUGS (1)
  1. LIRAGLUTIDE FLEXPEN [Suspect]
     Indication: TYPE 2 DIABETES MELLITUS
     Dosage: 0.6 MG, QD
     Route: 058
     Dates: start: 20130906, end: 20130910

REACTIONS (7)
  - Atrial fibrillation [Unknown]
  - Dyspnoea [Unknown]
  - Dizziness [Unknown]
  - Hyperhidrosis [Unknown]
  - Malaise [Unknown]
  - Diarrhoea [Recovered/Resolved]
  - Blood glucose decreased [Unknown]
